FAERS Safety Report 22325098 (Version 2)
Quarter: 2023Q2

REPORT INFORMATION
  Report Type: Spontaneous
  Country: US (occurrence: US)
  Receive Date: 20230516
  Receipt Date: 20230529
  Transmission Date: 20230722
  Serious: Yes (Other)
  Sender: FDA-Public Use
  Company Number: US-TAKEDA-2023TUS047841

PATIENT
  Age: 74 Year
  Sex: Female

DRUGS (4)
  1. ANAGRELIDE [Suspect]
     Active Substance: ANAGRELIDE
     Indication: Suicide attempt
     Dosage: 54 DOSAGE FORM
     Route: 048
  2. CLONAZEPAM [Concomitant]
     Active Substance: CLONAZEPAM
     Indication: Suicide attempt
     Dosage: 3 DOSAGE FORM
     Route: 048
  3. CITALOPRAM [Concomitant]
     Active Substance: CITALOPRAM HYDROBROMIDE
     Indication: Suicide attempt
     Dosage: 3 DOSAGE FORM
     Route: 048
  4. NOREPINEPHRINE [Concomitant]
     Active Substance: NOREPINEPHRINE

REACTIONS (12)
  - Suicide attempt [Unknown]
  - Long QT syndrome [Unknown]
  - Postural orthostatic tachycardia syndrome [Unknown]
  - Fall [Unknown]
  - Pupillary disorder [Unknown]
  - Periorbital haemorrhage [Unknown]
  - Hypotension [Unknown]
  - Orthostatic hypotension [Unknown]
  - Somnolence [Unknown]
  - Tachycardia [Unknown]
  - Epistaxis [Unknown]
  - Intentional overdose [Unknown]
